FAERS Safety Report 13752882 (Version 1)
Quarter: 2017Q3

REPORT INFORMATION
  Report Type: Spontaneous
  Country: CA (occurrence: US)
  Receive Date: 20170713
  Receipt Date: 20170713
  Transmission Date: 20171127
  Serious: Yes (Hospitalization, Disabling, Other)
  Sender: FDA-Public Use
  Company Number: None

PATIENT
  Age: 23 Year
  Sex: Female
  Weight: 63 kg

DRUGS (1)
  1. NUVARING [Suspect]
     Active Substance: ETHINYL ESTRADIOL\ETONOGESTREL
     Indication: CONTRACEPTION
     Dosage: OTHER FREQUENCY:THREE WEEKS;?
     Route: 067

REACTIONS (8)
  - Arthralgia [None]
  - Rotator cuff syndrome [None]
  - Vulvovaginal pruritus [None]
  - Joint swelling [None]
  - Periarthritis [None]
  - Sleep disorder [None]
  - Pain [None]
  - Vulvovaginal dryness [None]

NARRATIVE: CASE EVENT DATE: 20140301
